FAERS Safety Report 15942259 (Version 2)
Quarter: 2019Q1

REPORT INFORMATION
  Report Type: Spontaneous
  Country: US (occurrence: US)
  Receive Date: 20190209
  Receipt Date: 20190222
  Transmission Date: 20190417
  Serious: No
  Sender: FDA-Public Use
  Company Number: US-UNITED THERAPEUTICS-UNT-2019-002271

PATIENT
  Age: 48 Year
  Sex: Female

DRUGS (2)
  1. ORENITRAM [Suspect]
     Active Substance: TREPROSTINIL
     Dosage: 0.25 MG, BID
     Route: 048
     Dates: start: 20190201, end: 201902
  2. ORENITRAM [Suspect]
     Active Substance: TREPROSTINIL
     Indication: PULMONARY ARTERIAL HYPERTENSION
     Dosage: 0.5 MG, TID
     Route: 048
     Dates: start: 20190131

REACTIONS (5)
  - Swelling face [Unknown]
  - Dyspnoea [Unknown]
  - Visual impairment [Unknown]
  - Eye swelling [Unknown]
  - Chills [Unknown]

NARRATIVE: CASE EVENT DATE: 20190205
